FAERS Safety Report 8016930-8 (Version None)
Quarter: 2012Q1

REPORT INFORMATION
  Report Type: 
  Country: None (occurrence: None)
  Receive Date: 20120102
  Receipt Date: 20111223
  Transmission Date: 20120608
  Serious: Yes (Hospitalization)
  Sender: FDA-Public Use
  Company Number: PHHO2010US18530

PATIENT
  Sex: Male

DRUGS (1)
  1. NEORAL [Suspect]
     Indication: RENAL TRANSPLANT
     Dosage: 150 MG
     Route: 048
     Dates: start: 20101027

REACTIONS (4)
  - FALL [None]
  - LIMB INJURY [None]
  - HAEMATOMA [None]
  - ANAEMIA [None]
